FAERS Safety Report 6917463-X (Version None)
Quarter: 2010Q3

REPORT INFORMATION
  Report Type: 
  Country: None (occurrence: None)
  Receive Date: 20100810
  Receipt Date: 20100730
  Transmission Date: 20110219
  Serious: Yes (Hospitalization, Other)
  Sender: FDA-Public Use
  Company Number: PHHY2010BR22194

PATIENT
  Sex: Male

DRUGS (7)
  1. DIOVAN [Suspect]
     Indication: MYOCARDIAL INFARCTION
     Dosage: 80 MG, 1 TABLET A DAY
     Route: 048
  2. CARVEDILOL [Concomitant]
     Indication: MYOCARDIAL INFARCTION
     Dosage: 05 MG, 1 TABLET A DAY
     Route: 048
     Dates: start: 20090101
  3. CRESTOR [Concomitant]
     Indication: MYOCARDIAL INFARCTION
     Dosage: 10 MG; 1 TABLET A DAY
     Route: 048
     Dates: start: 20090101
  4. CLOPIDOGREL BISULFATE [Concomitant]
     Indication: MYOCARDIAL INFARCTION
     Dosage: 75 MG; 1 TABLET A DAY
     Route: 048
     Dates: start: 20090101
  5. BUFERIN [Concomitant]
     Indication: MYOCARDIAL INFARCTION
     Dosage: 81 MG, 1 TABLET A DAY
     Route: 048
     Dates: start: 20090101
  6. CLORANA [Concomitant]
     Indication: MYOCARDIAL INFARCTION
     Dosage: 25 MG, 1 TABLET A DAY
     Route: 048
     Dates: start: 20090101
  7. LANTUS [Concomitant]
     Indication: TYPE 2 DIABETES MELLITUS
     Dosage: 25 UI, A DAY
     Route: 058
     Dates: start: 20100329

REACTIONS (3)
  - FEELING ABNORMAL [None]
  - HYPERGLYCAEMIA [None]
  - TYPE 2 DIABETES MELLITUS [None]
